FAERS Safety Report 4832847-1 (Version None)
Quarter: 2005Q4

REPORT INFORMATION
  Report Type: 
  Country: None (occurrence: None)
  Receive Date: 20051121
  Receipt Date: 20050815
  Transmission Date: 20060501
  Serious: Yes (Hospitalization)
  Sender: FDA-Public Use
  Company Number: US-MERCK-0508USA02939

PATIENT
  Age: 75 Year
  Sex: Male
  Weight: 85 kg

DRUGS (2)
  1. VIOXX [Suspect]
     Indication: INFLAMMATION
     Route: 048
     Dates: start: 20020101, end: 20040101
  2. VIOXX [Suspect]
     Route: 048
     Dates: start: 20040127

REACTIONS (12)
  - ANGINA UNSTABLE [None]
  - AORTIC ANEURYSM [None]
  - ATRIAL FIBRILLATION [None]
  - CHEST PAIN [None]
  - CORONARY ARTERY DISEASE [None]
  - DIABETES MELLITUS [None]
  - HYPERTENSION [None]
  - INFLUENZA [None]
  - LOCALISED INFECTION [None]
  - MYOCARDIAL INFARCTION [None]
  - PERICARDITIS [None]
  - PERIPHERAL VASCULAR DISORDER [None]
